FAERS Safety Report 10656375 (Version 2)
Quarter: 2014Q4

REPORT INFORMATION
  Report Type: Spontaneous
  Country: US (occurrence: US)
  Receive Date: 20141216
  Receipt Date: 20141216
  Transmission Date: 20150529
  Serious: Yes (Hospitalization, Other)
  Sender: FDA-Public Use
  Company Number: US-CELGENEUS-163-20785-14010513

PATIENT
  Age: 18 Year
  Sex: Male
  Weight: 59.02 kg

DRUGS (11)
  1. FENOFIBRATE. [Concomitant]
     Active Substance: FENOFIBRATE
     Indication: CHEMOTHERAPY
     Route: 048
     Dates: start: 20131206
  2. ETOPOSIDE. [Concomitant]
     Active Substance: ETOPOSIDE
     Indication: CHEMOTHERAPY
     Route: 048
     Dates: start: 20131206
  3. THALOMID [Suspect]
     Active Substance: THALIDOMIDE
     Indication: MEDULLOBLASTOMA
     Route: 048
     Dates: start: 20131206, end: 2013
  4. THALOMID [Suspect]
     Active Substance: THALIDOMIDE
     Route: 048
     Dates: start: 20140119, end: 201401
  5. THALOMID [Suspect]
     Active Substance: THALIDOMIDE
     Route: 048
     Dates: start: 20140118
  6. THALOMID [Suspect]
     Active Substance: THALIDOMIDE
     Route: 048
     Dates: start: 20140103, end: 20140106
  7. ETOPOSIDE. [Concomitant]
     Active Substance: ETOPOSIDE
     Route: 048
  8. THALOMID [Suspect]
     Active Substance: THALIDOMIDE
     Route: 048
     Dates: start: 20131207
  9. CELEBREX [Concomitant]
     Active Substance: CELECOXIB
     Indication: CHEMOTHERAPY
     Dosage: 200-400 MG
     Route: 065
     Dates: start: 20131206
  10. CYTOXAN [Concomitant]
     Active Substance: CYCLOPHOSPHAMIDE
     Indication: CHEMOTHERAPY
     Route: 048
     Dates: start: 20131227
  11. CYTOXAN [Concomitant]
     Active Substance: CYCLOPHOSPHAMIDE
     Route: 048

REACTIONS (3)
  - Fatigue [Unknown]
  - Adverse drug reaction [Unknown]
  - Sinus bradycardia [Recovered/Resolved]

NARRATIVE: CASE EVENT DATE: 20131218
